FAERS Safety Report 18860351 (Version 1)
Quarter: 2021Q1

REPORT INFORMATION
  Report Type: Spontaneous
  Country: ES (occurrence: ES)
  Receive Date: 20210208
  Receipt Date: 20210208
  Transmission Date: 20210420
  Serious: Yes (Death)
  Sender: FDA-Public Use
  Company Number: ES-ROCHE-2763703

PATIENT
  Age: 58 Year
  Sex: Female

DRUGS (3)
  1. HIDROCORTISONA [Suspect]
     Active Substance: HYDROCORTISONE
     Indication: COVID-19 PNEUMONIA
     Route: 042
     Dates: start: 20200408, end: 20200408
  2. TOCILIZUMAB. [Suspect]
     Active Substance: TOCILIZUMAB
     Indication: COVID-19 PNEUMONIA
     Route: 042
     Dates: start: 20200409, end: 20200409
  3. METILPREDNISOLONA [Suspect]
     Active Substance: METHYLPREDNISOLONE
     Indication: COVID-19 PNEUMONIA
     Route: 042
     Dates: start: 20200407, end: 20200416

REACTIONS (2)
  - Drug interaction [Unknown]
  - Large intestine perforation [Fatal]

NARRATIVE: CASE EVENT DATE: 20200416
